FAERS Safety Report 5733487-2 (Version None)
Quarter: 2008Q2

REPORT INFORMATION
  Report Type: 
  Country: None (occurrence: None)
  Receive Date: 20080509
  Receipt Date: 20080502
  Transmission Date: 20081010
  Serious: Yes (Hospitalization)
  Sender: FDA-Public Use
  Company Number: JP-MERCK-0805USA00332

PATIENT
  Age: 82 Year
  Sex: Male

DRUGS (4)
  1. COZAAR [Suspect]
     Indication: HYPERTENSION
     Route: 048
     Dates: end: 20080502
  2. ADALAT [Concomitant]
     Indication: HYPERTENSION
     Route: 048
  3. WARFARIN POTASSIUM [Concomitant]
     Route: 048
  4. NORMONAL [Concomitant]
     Indication: CEREBRAL INFARCTION
     Route: 048

REACTIONS (1)
  - RHABDOMYOLYSIS [None]
